FAERS Safety Report 7549676-0 (Version None)
Quarter: 2011Q2

REPORT INFORMATION
  Report Type: 
  Country: None (occurrence: None)
  Receive Date: 20110615
  Receipt Date: 20110609
  Transmission Date: 20111010
  Serious: Yes (Other)
  Sender: FDA-Public Use
  Company Number: US-ABBOTT-11P-163-0725326-00

PATIENT
  Sex: Male
  Weight: 132.11 kg

DRUGS (4)
  1. LEXAPRO [Concomitant]
     Indication: DEPRESSION
     Route: 048
  2. NEXIUM [Concomitant]
     Indication: GASTROOESOPHAGEAL REFLUX DISEASE
     Route: 048
  3. HUMIRA [Suspect]
     Indication: CROHN'S DISEASE
     Route: 058
     Dates: start: 20090625
  4. TESTOSTERONE SHOTS [Concomitant]
     Indication: BLOOD TESTOSTERONE DECREASED
     Dates: start: 20110501

REACTIONS (12)
  - BLINDNESS [None]
  - HYPOAESTHESIA [None]
  - VISUAL IMPAIRMENT [None]
  - MENTAL IMPAIRMENT [None]
  - VISION BLURRED [None]
  - LIVER FUNCTION TEST ABNORMAL [None]
  - HEPATIC STEATOSIS [None]
  - DEPRESSION [None]
  - PARAESTHESIA [None]
  - ANXIETY [None]
  - AMNESIA [None]
  - HEADACHE [None]
